FAERS Safety Report 4332592-5 (Version None)
Quarter: 2004Q2

REPORT INFORMATION
  Report Type: 
  Country: None (occurrence: None)
  Receive Date: 20040401
  Receipt Date: 20040325
  Transmission Date: 20050107
  Serious: Yes (Death, Disabling)
  Sender: FDA-Public Use
  Company Number: 2004195924JP

PATIENT
  Age: 76 Year
  Sex: Male

DRUGS (11)
  1. CAMPTOSAR [Suspect]
     Indication: SMALL CELL LUNG CANCER STAGE UNSPECIFIED
     Dosage: 90 MG, CYCLIC, IV DRIP
     Route: 041
     Dates: start: 20030819, end: 20031002
  2. CALSED (AMRUBICIN HYDROCHLORIDE) [Concomitant]
     Indication: SMALL CELL LUNG CANCER STAGE UNSPECIFIED
     Dosage: 62 MG, UNK, IV DRIP
     Route: 041
     Dates: start: 20031204, end: 20031206
  3. CISPLATIN [Suspect]
     Indication: SMALL CELL LUNG CANCER STAGE UNSPECIFIED
     Dosage: 90 MG, CYCLIC, IV DRIP; 130 MG, CYCLIC, IV DRIP
     Route: 041
     Dates: start: 20030819, end: 20030925
  4. CISPLATIN [Suspect]
     Indication: SMALL CELL LUNG CANCER STAGE UNSPECIFIED
     Dosage: 90 MG, CYCLIC, IV DRIP; 130 MG, CYCLIC, IV DRIP
     Route: 041
     Dates: start: 20031030, end: 20031030
  5. VEPESID [Suspect]
     Indication: SMALL CELL LUNG CANCER STAGE UNSPECIFIED
     Dosage: 160 MG, CYCLIC, IV DRIP
     Route: 041
     Dates: start: 20031030, end: 20031101
  6. HANGE-SHASHIN-TO(HANGE-SHASHIN-TO) [Concomitant]
     Indication: DIARRHOEA
     Dosage: 7.5 G, UNK, ORAL
     Route: 048
     Dates: start: 20030917, end: 20031128
  7. NEUTROGIN (LENOGRASTIM) [Concomitant]
     Indication: PROPHYLAXIS
     Dosage: 100 UG, UNK, SUBCUTANEOUS
     Route: 058
     Dates: start: 20031003, end: 20031221
  8. LOXONIN (LOXOPROFEN SODIUM) [Concomitant]
     Indication: PAIN
     Dosage: 180 MG, UNK, ORAL
     Route: 048
     Dates: start: 20031016, end: 20031229
  9. HALCION [Concomitant]
  10. MARUYAMA VACCINE (TUBERCULIN) [Concomitant]
  11. MS CONTIN [Concomitant]

REACTIONS (9)
  - CHEYNE-STOKES RESPIRATION [None]
  - COMA [None]
  - DISEASE PROGRESSION [None]
  - INFECTION [None]
  - INTERSTITIAL LUNG DISEASE [None]
  - LYMPHANGIOSIS CARCINOMATOSA [None]
  - PLEURAL EFFUSION [None]
  - RESPIRATORY FAILURE [None]
  - SMALL CELL LUNG CANCER STAGE UNSPECIFIED [None]
